FAERS Safety Report 10621577 (Version 4)
Quarter: 2017Q1

REPORT INFORMATION
  Report Type: Report from Study
  Country: US (occurrence: US)
  Receive Date: 20141203
  Receipt Date: 20170317
  Transmission Date: 20170428
  Serious: Yes (Hospitalization, Other)
  Sender: FDA-Public Use
  Company Number: US-SA-2014SA164811

PATIENT
  Age: 77 Year
  Sex: Male
  Weight: 133.8 kg

DRUGS (18)
  1. LANTUS [Concomitant]
     Active Substance: INSULIN GLARGINE
     Dosage: 1995 OR 1996 DOSE:30 UNIT(S)
     Route: 065
  2. TOPROL XL [Concomitant]
     Active Substance: METOPROLOL SUCCINATE
     Dosage: AM
  3. APIDRA [Suspect]
     Active Substance: INSULIN GLULISINE
     Indication: DIABETES MELLITUS
     Route: 065
     Dates: start: 2009
  4. APIDRA [Suspect]
     Active Substance: INSULIN GLULISINE
     Indication: DIABETES MELLITUS
     Dosage: 20 U IN MORNING, 10 AT NOON AND 10 IN EVENING
     Route: 065
  5. GABAPENTIN. [Concomitant]
     Active Substance: GABAPENTIN
     Dosage: 1 AM AMD 3 PM
  6. SYNTHROID [Concomitant]
     Active Substance: LEVOTHYROXINE SODIUM
     Dosage: AM
  7. CRESTOR [Concomitant]
     Active Substance: ROSUVASTATIN CALCIUM
     Dosage: PM
  8. FUROSEMIDE. [Concomitant]
     Active Substance: FUROSEMIDE
     Dosage: AM
  9. VITAMIN B COMPLEX [Concomitant]
     Active Substance: CYANOCOBALAMIN\DEXPANTHENOL\NIACINAMIDE\PYRIDOXINE HYDROCHLORIDE\RIBOFLAVIN 5^-PHOSPHATE SODIUM\THIAMINE HYDROCHLORIDE\VITAMIN B COMPLEX
     Dosage: PM
  10. FISH OIL [Concomitant]
     Active Substance: FISH OIL
     Dosage: AM, PM
  11. LANTUS [Concomitant]
     Active Substance: INSULIN GLARGINE
     Dosage: 1995 OR 1996 DOSE:40 UNIT(S)
     Route: 065
  12. POTASSIUM [Concomitant]
     Active Substance: POTASSIUM
     Dosage: PM
  13. PLAVIX [Concomitant]
     Active Substance: CLOPIDOGREL BISULFATE
     Dosage: PM
  14. ASPIRIN. [Concomitant]
     Active Substance: ASPIRIN
     Dosage: AM
  15. FLAX SEED [Concomitant]
     Active Substance: FLAX SEED
     Dosage: 1 ROUND TBLS
  16. APIDRA [Suspect]
     Active Substance: INSULIN GLULISINE
     Indication: DIABETES MELLITUS
     Dosage: 24U AM, 10U LUNCH, 15U PM
     Route: 065
  17. FINASTERIDE. [Concomitant]
     Active Substance: FINASTERIDE
     Dosage: AM
  18. CALCIUM [Concomitant]
     Active Substance: CALCIUM
     Dosage: AM, PM

REACTIONS (6)
  - Abdominal discomfort [Unknown]
  - Heart rate irregular [Unknown]
  - Glycosylated haemoglobin increased [Unknown]
  - Blood glucose increased [Recovering/Resolving]
  - Musculoskeletal pain [Not Recovered/Not Resolved]
  - Cardiac disorder [Unknown]

NARRATIVE: CASE EVENT DATE: 2014
